FAERS Safety Report 23410172 (Version 1)
Quarter: 2024Q1

REPORT INFORMATION
  Report Type: Spontaneous
  Country: US (occurrence: None)
  Receive Date: 20240116
  Receipt Date: 20240116
  Transmission Date: 20240410
  Serious: Yes (Hospitalization)
  Sender: FDA-Public Use
  Company Number: None

PATIENT
  Age: 88 Year
  Sex: Female
  Weight: 58 kg

DRUGS (2)
  1. MEROPENEM [Suspect]
     Active Substance: MEROPENEM
     Indication: Antimicrobial susceptibility test resistant
     Dosage: FREQUENCY : TWICE A DAY;?
     Route: 042
     Dates: start: 20240109, end: 20240110
  2. MEROPENEM [Suspect]
     Active Substance: MEROPENEM
     Indication: Escherichia urinary tract infection

REACTIONS (1)
  - Confusional state [None]

NARRATIVE: CASE EVENT DATE: 20240109
